FAERS Safety Report 24575678 (Version 1)
Quarter: 2024Q4

REPORT INFORMATION
  Report Type: Spontaneous
  Country: US (occurrence: None)
  Receive Date: 20241101
  Receipt Date: 20241101
  Transmission Date: 20250114
  Serious: Yes (Death, Hospitalization)
  Sender: Public
  Company Number: None

PATIENT
  Age: 49 Year
  Sex: Male

DRUGS (1)
  1. OPSUMIT [Suspect]
     Active Substance: MACITENTAN
     Indication: Pulmonary hypertension
     Dosage: FREQUENCY : DAILY;?
     Route: 048
     Dates: start: 20171101, end: 20220523

REACTIONS (9)
  - Alcohol withdrawal syndrome [None]
  - Lactic acidosis [None]
  - Hepatopulmonary syndrome [None]
  - Seizure [None]
  - Mental impairment [None]
  - Respiratory distress [None]
  - Cerebral infarction [None]
  - Hepatic cirrhosis [None]
  - Hospice care [None]

NARRATIVE: CASE EVENT DATE: 20230104
